FAERS Safety Report 8447171-8 (Version None)
Quarter: 2012Q2

REPORT INFORMATION
  Report Type: 
  Country: None (occurrence: None)
  Receive Date: 20120619
  Receipt Date: 20120607
  Transmission Date: 20120825
  Serious: Yes (Other)
  Sender: FDA-Public Use
  Company Number: CN-PFIZER INC-2012145166

PATIENT
  Age: 46 Year
  Sex: Female
  Weight: 60 kg

DRUGS (12)
  1. EPIRUBICIN HYDROCHLORIDE [Suspect]
     Dosage: 110 MG, SINGLE
     Route: 041
     Dates: start: 20090311, end: 20090311
  2. CYCLOPHOSPHAMIDE [Concomitant]
     Dosage: UNK
     Dates: start: 20090422, end: 20090422
  3. DOCETAXEL [Concomitant]
     Dosage: UNK
     Dates: start: 20090422, end: 20090422
  4. CYCLOPHOSPHAMIDE [Concomitant]
     Indication: BREAST CANCER
     Dosage: 0.8 (UNIT UNKNOWN)
     Route: 041
     Dates: start: 20090214, end: 20090214
  5. EPIRUBICIN HYDROCHLORIDE [Suspect]
     Dosage: UNK
     Route: 041
     Dates: start: 20090401, end: 20090401
  6. EPIRUBICIN HYDROCHLORIDE [Suspect]
     Dosage: UNK
     Route: 041
     Dates: start: 20090422, end: 20090422
  7. CYCLOPHOSPHAMIDE [Concomitant]
     Dosage: 0.8 (UNIT UNKNOWN)
     Route: 041
     Dates: start: 20090311, end: 20090311
  8. FLUOROURACIL [Concomitant]
     Indication: BREAST CANCER
     Dosage: 0.75 (UNIT UNKNOWN), SINGLE
     Route: 041
     Dates: start: 20090214, end: 20090214
  9. DOCETAXEL [Concomitant]
     Indication: BREAST CANCER
     Dosage: 110 MG, SINGLE
     Route: 041
     Dates: start: 20090311, end: 20090311
  10. DOCETAXEL [Concomitant]
     Dosage: UNK
     Dates: start: 20090401, end: 20090401
  11. CYCLOPHOSPHAMIDE [Concomitant]
     Dosage: UNK
     Dates: start: 20090401, end: 20090401
  12. EPIRUBICIN HYDROCHLORIDE [Suspect]
     Indication: BREAST CANCER
     Dosage: 110 MG, SINGLE
     Route: 041
     Dates: start: 20090214, end: 20090214

REACTIONS (3)
  - VENTRICULAR TACHYCARDIA [None]
  - PALPITATIONS [None]
  - CHEST DISCOMFORT [None]
